FAERS Safety Report 18413204 (Version 2)
Quarter: 2020Q4

REPORT INFORMATION
  Report Type: Spontaneous
  Country: US (occurrence: US)
  Receive Date: 20201021
  Receipt Date: 20201105
  Transmission Date: 20210114
  Serious: Yes (Hospitalization, Other)
  Sender: FDA-Public Use
  Company Number: US-LUNDBECK-DKLU3022808

PATIENT
  Age: 81 Year
  Sex: Female

DRUGS (2)
  1. NORTHERA [Suspect]
     Active Substance: DROXIDOPA
     Indication: PARKINSON^S DISEASE
     Route: 048
     Dates: start: 202005
  2. NORTHERA [Suspect]
     Active Substance: DROXIDOPA
     Indication: HYPOTENSION
     Route: 048
     Dates: start: 20200506, end: 20201021

REACTIONS (11)
  - Cognitive disorder [Unknown]
  - Agitation [Unknown]
  - Loss of consciousness [Unknown]
  - Aggression [Unknown]
  - Unresponsive to stimuli [Recovered/Resolved]
  - Memory impairment [Unknown]
  - Syncope [Unknown]
  - General physical health deterioration [Unknown]
  - Cerebrovascular accident [Unknown]
  - Mental impairment [Unknown]
  - Seizure [Unknown]

NARRATIVE: CASE EVENT DATE: 202005
